FAERS Safety Report 23439585 (Version 2)
Quarter: 2025Q1

REPORT INFORMATION
  Report Type: Spontaneous
  Country: US (occurrence: None)
  Receive Date: 20240124
  Receipt Date: 20250317
  Transmission Date: 20250408
  Serious: Yes (Hospitalization, Other)
  Sender: INCYTE
  Company Number: US-INCYTE CORPORATION-2024IN000752

PATIENT
  Age: 61 Year

DRUGS (1)
  1. JAKAFI [Suspect]
     Active Substance: RUXOLITINIB
     Indication: Product used for unknown indication
     Dosage: 25 MILLIGRAM, BID

REACTIONS (9)
  - Pulmonary embolism [Recovering/Resolving]
  - Pain [Unknown]
  - Insomnia [Unknown]
  - Fall [Unknown]
  - Anhedonia [Unknown]
  - Depressed mood [Unknown]
  - Back pain [Unknown]
  - Asthenia [Unknown]
  - Nausea [Unknown]
